FAERS Safety Report 18212385 (Version 1)
Quarter: 2020Q3

REPORT INFORMATION
  Report Type: Spontaneous
  Country: US (occurrence: US)
  Receive Date: 20200828
  Receipt Date: 20200828
  Transmission Date: 20201103
  Serious: Yes (Hospitalization)
  Sender: FDA-Public Use
  Company Number: None

PATIENT
  Age: 33 Year
  Sex: Female

DRUGS (19)
  1. TOPIMARATE [Concomitant]
  2. OXYCODONE AND ACETAMINOPHEN [Concomitant]
     Active Substance: ACETAMINOPHEN\OXYCODONE HYDROCHLORIDE
  3. VENTOLIN [Concomitant]
     Active Substance: ALBUTEROL SULFATE
  4. DULOXETINE. [Concomitant]
     Active Substance: DULOXETINE
  5. ONDANSETRON [Concomitant]
     Active Substance: ONDANSETRON
  6. MELOXICAM. [Concomitant]
     Active Substance: MELOXICAM
  7. TALTZ [Suspect]
     Active Substance: IXEKIZUMAB
     Indication: PSORIATIC ARTHROPATHY
     Dosage: ?          OTHER FREQUENCY:WEEKS 4,6,8 + 10;?
     Route: 058
     Dates: start: 20200610
  8. BUT/APAP/CAF [Concomitant]
  9. ATORVASTATIN [Concomitant]
     Active Substance: ATORVASTATIN
  10. KETOROLAC [Concomitant]
     Active Substance: KETOROLAC TROMETHAMINE
  11. ACETAZOLAMID [Concomitant]
     Active Substance: ACETAZOLAMIDE
  12. METOPROL TAR [Concomitant]
  13. ALPRAZOLAM. [Concomitant]
     Active Substance: ALPRAZOLAM
  14. FAMOTIDINE. [Concomitant]
     Active Substance: FAMOTIDINE
  15. HYDROXYZ PAM [Concomitant]
     Active Substance: HYDROXYZINE PAMOATE
  16. TRAMADOL. [Concomitant]
     Active Substance: TRAMADOL
  17. MECLIZINE [Concomitant]
     Active Substance: MECLIZINE HYDROCHLORIDE
  18. SUMATRIPTAN. [Concomitant]
     Active Substance: SUMATRIPTAN
  19. AZITHROMYCIN ANHYDROUS. [Concomitant]
     Active Substance: AZITHROMYCIN ANHYDROUS

REACTIONS (5)
  - Pain [None]
  - Cerebral disorder [None]
  - Dizziness [None]
  - Migraine [None]
  - Poverty of speech [None]
